FAERS Safety Report 12936155 (Version 1)
Quarter: 2016Q4

REPORT INFORMATION
  Report Type: Spontaneous
  Country: US (occurrence: US)
  Receive Date: 20161111
  Receipt Date: 20161111
  Transmission Date: 20170207
  Serious: No
  Sender: FDA-Public Use
  Company Number: None

PATIENT
  Age: 60 Year
  Sex: Male
  Weight: 81 kg

DRUGS (8)
  1. DOXYCYCLINE MONO [Concomitant]
  2. CHONDROITIN [Concomitant]
     Active Substance: CHONDROITIN
  3. PICATO [Suspect]
     Active Substance: INGENOL MEBUTATE
     Indication: PRECANCEROUS SKIN LESION
     Dosage: ?          QUANTITY:3 TUBE;?
     Route: 061
     Dates: start: 20161107, end: 20161109
  4. LOSARTAN AND HYDROCHLOROTHIAZIDE [Concomitant]
     Active Substance: HYDROCHLOROTHIAZIDE\LOSARTAN POTASSIUM
  5. MEDROL [Concomitant]
     Active Substance: METHYLPREDNISOLONE
  6. GLUCOSAMINE [Concomitant]
     Active Substance: GLUCOSAMINE
  7. CLOBETASOL PROPIONATE. [Concomitant]
     Active Substance: CLOBETASOL PROPIONATE
  8. COQ10 [Concomitant]
     Active Substance: UBIDECARENONE

REACTIONS (3)
  - Accidental overdose [None]
  - Hypersensitivity [None]
  - Wrong technique in product usage process [None]

NARRATIVE: CASE EVENT DATE: 20161110
